FAERS Safety Report 11264219 (Version 2)
Quarter: 2015Q3

REPORT INFORMATION
  Report Type: Spontaneous
  Country: ES (occurrence: ES)
  Receive Date: 20150713
  Receipt Date: 20150723
  Transmission Date: 20151125
  Serious: Yes (Other)
  Sender: FDA-Public Use
  Company Number: ES-009507513-1507ESP004460

PATIENT
  Age: 6 Year
  Sex: Male
  Weight: 21 kg

DRUGS (3)
  1. IBUPROFEN. [Concomitant]
     Active Substance: IBUPROFEN
     Dosage: UNK, BID
     Route: 048
     Dates: start: 20150413
  2. AERIUS [Suspect]
     Active Substance: DESLORATADINE
     Indication: RHINITIS
     Dosage: UNK UNK, QD
     Route: 048
     Dates: start: 2013, end: 201507
  3. DITROPAN [Suspect]
     Active Substance: OXYBUTYNIN CHLORIDE
     Indication: URINARY INCONTINENCE
     Dosage: 0.5 MG, BID
     Route: 048
     Dates: start: 20150219, end: 20150412

REACTIONS (2)
  - Alice in wonderland syndrome [Recovered/Resolved]
  - Hallucination, visual [Recovered/Resolved]

NARRATIVE: CASE EVENT DATE: 20150413
